FAERS Safety Report 5871319-2 (Version None)
Quarter: 2008Q3

REPORT INFORMATION
  Report Type: 
  Country: None (occurrence: None)
  Receive Date: 20080904
  Receipt Date: 20080904
  Transmission Date: 20090109
  Serious: No
  Sender: FDA-Public Use
  Company Number: None

PATIENT
  Sex: Male
  Weight: 81.6475 kg

DRUGS (1)
  1. MICARDIS [Suspect]
     Indication: HYPERTENSION
     Dosage: 80 MG 1 PILL A DAY
     Dates: start: 20070101, end: 20071101

REACTIONS (2)
  - IMPAIRED WORK ABILITY [None]
  - TREMOR [None]
